FAERS Safety Report 19899401 (Version 1)
Quarter: 2021Q3

REPORT INFORMATION
  Report Type: Report from Study
  Country: BE (occurrence: BE)
  Receive Date: 20210929
  Receipt Date: 20210929
  Transmission Date: 20211014
  Serious: Yes (Hospitalization)
  Sender: FDA-Public Use
  Company Number: BE-MYLANLABS-2021M1066594

PATIENT
  Age: 51 Year
  Sex: Male
  Weight: 96.1 kg

DRUGS (6)
  1. TAVEGYL [Concomitant]
     Active Substance: CLEMASTINE FUMARATE
     Indication: PREMEDICATION
     Dosage: 2 MILLIGRAM
     Route: 042
     Dates: start: 20210412, end: 20210412
  2. DEXAMETHASONE. [Suspect]
     Active Substance: DEXAMETHASONE
     Indication: B-CELL LYMPHOMA
     Dosage: 40 MILLIGRAM
     Route: 065
     Dates: start: 20210406
  3. PARACETAMOL [Concomitant]
     Active Substance: ACETAMINOPHEN
     Indication: PREMEDICATION
     Dosage: 1 GRAM
     Route: 048
     Dates: start: 20210412, end: 20210412
  4. CYTARABINE. [Suspect]
     Active Substance: CYTARABINE
     Indication: B-CELL LYMPHOMA
     Dosage: 4440 MILLIGRAM (LATEST DOSE ADMINISTERED ON 07/APR/2021)
     Route: 042
     Dates: start: 20210407
  5. RITUXIMAB. [Suspect]
     Active Substance: RITUXIMAB
     Indication: B-CELL LYMPHOMA
     Dosage: 832.5 MILLIGRAM (DATE OF LAST DOSE PRIOR TO EVENT: 06/APR/2021)
     Route: 041
     Dates: start: 20210406
  6. SODIUM PHOSPHATE [Suspect]
     Active Substance: SODIUM PHOSPHATE
     Indication: LYMPHOMA
     Dosage: UNK
     Route: 042
     Dates: start: 20210406

REACTIONS (1)
  - Thrombocytopenia [Recovered/Resolved]

NARRATIVE: CASE EVENT DATE: 20210419
